FAERS Safety Report 20878213 (Version 1)
Quarter: 2022Q2

REPORT INFORMATION
  Report Type: Spontaneous
  Country: US (occurrence: US)
  Receive Date: 20220526
  Receipt Date: 20220526
  Transmission Date: 20220720
  Serious: No
  Sender: FDA-Public Use
  Company Number: US-KYOWAKIRIN-2022BKK007622

PATIENT

DRUGS (1)
  1. POTELIGEO [Suspect]
     Active Substance: MOGAMULIZUMAB-KPKC
     Indication: Cutaneous T-cell lymphoma
     Dosage: 110 MG, 1X/2 WEEKS( ON DAY 1 AND 15 OF 28 DAY CYCLE)
     Route: 042
     Dates: start: 20211109

REACTIONS (1)
  - Disease progression [Unknown]
